FAERS Safety Report 18639712 (Version 1)
Quarter: 2020Q4

REPORT INFORMATION
  Report Type: Spontaneous
  Country: US (occurrence: US)
  Receive Date: 20201220
  Receipt Date: 20201220
  Transmission Date: 20210114
  Serious: No
  Sender: FDA-Public Use
  Company Number: US-SA-2020SA362396

PATIENT

DRUGS (15)
  1. BUPROPION HCL [Concomitant]
     Active Substance: BUPROPION HYDROCHLORIDE
  2. CLOBETASOL [Concomitant]
     Active Substance: CLOBETASOL
  3. LEVOTHYROXIN [Concomitant]
     Active Substance: LEVOTHYROXINE
  4. CYANOCOBALAMIN. [Concomitant]
     Active Substance: CYANOCOBALAMIN
  5. ALPRAZOLAM. [Concomitant]
     Active Substance: ALPRAZOLAM
  6. LETROZOLE. [Concomitant]
     Active Substance: LETROZOLE
  7. FOLIC ACID. [Concomitant]
     Active Substance: FOLIC ACID
  8. REXULTI [Concomitant]
     Active Substance: BREXPIPRAZOLE
  9. DULOXETINE. [Concomitant]
     Active Substance: DULOXETINE
  10. CARVEDILOL. [Concomitant]
     Active Substance: CARVEDILOL
  11. AMLODIPINE [Concomitant]
     Active Substance: AMLODIPINE BESYLATE
  12. HYDROXYCHLOROQUINE [Concomitant]
     Active Substance: HYDROXYCHLOROQUINE
  13. DUPIXENT [Suspect]
     Active Substance: DUPILUMAB
     Indication: DERMATITIS ALLERGIC
     Dosage: UNK
     Route: 058
  14. TACROLIMUS. [Concomitant]
     Active Substance: TACROLIMUS
  15. LOSARTAN. [Concomitant]
     Active Substance: LOSARTAN

REACTIONS (2)
  - Discomfort [Not Recovered/Not Resolved]
  - Eczema [Not Recovered/Not Resolved]
